FAERS Safety Report 5582663-0 (Version None)
Quarter: 2008Q1

REPORT INFORMATION
  Report Type: 
  Country: None (occurrence: None)
  Receive Date: 20080107
  Receipt Date: 20071207
  Transmission Date: 20080703
  Serious: No
  Sender: FDA-Public Use
  Company Number: US-BAYER-200716008NA

PATIENT
  Age: 50 Year
  Sex: Male

DRUGS (2)
  1. AVELOX [Suspect]
     Indication: TOOTH INFECTION
     Dosage: TOTAL DAILY DOSE: 400 MG  UNIT DOSE: 400 MG
     Route: 048
     Dates: start: 20071101
  2. ACETAMINOPHEN [Concomitant]

REACTIONS (3)
  - HYPERSENSITIVITY [None]
  - PLANTAR ERYTHEMA [None]
  - PRURITUS [None]
